FAERS Safety Report 14676080 (Version 1)
Quarter: 2018Q1

REPORT INFORMATION
  Report Type: Spontaneous
  Country: RO (occurrence: RO)
  Receive Date: 20180323
  Receipt Date: 20180323
  Transmission Date: 20180509
  Serious: Yes (Other)
  Sender: FDA-Public Use
  Company Number: RO-TEVA-2018-RO-871562

PATIENT
  Age: 5 Year
  Sex: Female

DRUGS (4)
  1. MONTELUKAST ACTAVIS [Suspect]
     Active Substance: MONTELUKAST SODIUM
     Indication: RHINITIS ALLERGIC
     Route: 048
  2. TAMALIS [Concomitant]
     Indication: RHINITIS ALLERGIC
     Dosage: 2.5 MG/DAY
     Route: 048
  3. MONTELUKAST ACTAVIS [Suspect]
     Active Substance: MONTELUKAST SODIUM
     Indication: ASTHMA
  4. VENTOLIN [Concomitant]
     Active Substance: ALBUTEROL SULFATE
     Indication: ASTHMA
     Dosage: 4.5 MG/DAY
     Route: 055

REACTIONS (6)
  - Middle insomnia [Recovered/Resolved]
  - Aggression [Recovered/Resolved]
  - Agitation [Recovered/Resolved]
  - Intentional self-injury [Recovered/Resolved]
  - Sleep disorder [Recovered/Resolved]
  - Crying [Recovered/Resolved]
